FAERS Safety Report 25014623 (Version 3)
Quarter: 2025Q2

REPORT INFORMATION
  Report Type: Report from Study
  Country: US (occurrence: US)
  Receive Date: 20250226
  Receipt Date: 20250520
  Transmission Date: 20250717
  Serious: Yes (Other)
  Sender: IPSEN BIOPHARMACEUTICALS, INC.
  Company Number: US-IPSEN Group, Research and Development-2025-01058

PATIENT
  Age: 43 Year
  Sex: Female

DRUGS (5)
  1. IQIRVO [Suspect]
     Active Substance: ELAFIBRANOR
     Indication: Primary biliary cholangitis
     Dosage: 80 MG DAILY
     Route: 048
     Dates: start: 20250111
  2. PREDNISONE [Concomitant]
     Active Substance: PREDNISONE
  3. URSODIOL [Concomitant]
     Active Substance: URSODIOL
  4. TACROLIMUS [Concomitant]
     Active Substance: TACROLIMUS
  5. CELLCEPT [Concomitant]
     Active Substance: MYCOPHENOLATE MOFETIL

REACTIONS (5)
  - Hypertension [Unknown]
  - Lethargy [Unknown]
  - Dizziness [Unknown]
  - Headache [Unknown]
  - Fatigue [Not Recovered/Not Resolved]

NARRATIVE: CASE EVENT DATE: 20250113
